FAERS Safety Report 9558802 (Version 4)
Quarter: 2015Q4

REPORT INFORMATION
  Report Type: Report from Study
  Country: US (occurrence: US)
  Receive Date: 20130926
  Receipt Date: 20151009
  Transmission Date: 20160305
  Serious: Yes (Other)
  Sender: FDA-Public Use
  Company Number: US-ROCHE-1279291

PATIENT
  Age: 46 Year
  Sex: Female

DRUGS (22)
  1. ADVAIR DISKUS [Concomitant]
     Active Substance: FLUTICASONE PROPIONATE\SALMETEROL XINAFOATE
     Dosage: 500/50MCG PER DOSE 1 PUFF BID (AM/PM)
     Route: 065
  2. CLONIDINE. [Concomitant]
     Active Substance: CLONIDINE
     Route: 048
  3. FLOVENT HFA [Concomitant]
     Active Substance: FLUTICASONE PROPIONATE
     Dosage: 2 PUFF X 30DAYS
     Route: 065
     Dates: start: 20120927
  4. LASIX [Concomitant]
     Active Substance: FUROSEMIDE
     Route: 048
  5. SINGULAIR [Concomitant]
     Active Substance: MONTELUKAST SODIUM
     Route: 048
     Dates: start: 20120927
  6. XOLAIR [Suspect]
     Active Substance: OMALIZUMAB
     Indication: RHINITIS ALLERGIC
  7. THEOPHYLLINE [Concomitant]
     Active Substance: THEOPHYLLINE ANHYDROUS
     Route: 048
     Dates: start: 20130429
  8. XOLAIR [Suspect]
     Active Substance: OMALIZUMAB
     Indication: CHRONIC OBSTRUCTIVE PULMONARY DISEASE
  9. TRAMADOL. [Concomitant]
     Active Substance: TRAMADOL
     Route: 048
  10. CPAP [Concomitant]
     Active Substance: DEVICE
     Dosage: 11 CM WATER
     Route: 065
  11. METFORMIN [Concomitant]
     Active Substance: METFORMIN HYDROCHLORIDE
     Route: 048
  12. XOLAIR [Suspect]
     Active Substance: OMALIZUMAB
     Indication: BRONCHIAL HYPERREACTIVITY
  13. LORATADINE. [Concomitant]
     Active Substance: LORATADINE
     Route: 048
  14. POTASSIUM CHLORIDE. [Concomitant]
     Active Substance: POTASSIUM CHLORIDE
     Dosage: 20 MEQ
     Route: 048
  15. XOLAIR [Suspect]
     Active Substance: OMALIZUMAB
     Indication: ASTHMA
     Dosage: SQ EVERY WKS STARTED IN 2004
     Route: 058
     Dates: start: 2004, end: 201202
  16. XOLAIR [Suspect]
     Active Substance: OMALIZUMAB
     Indication: HYPERSENSITIVITY
  17. LISINOPRIL. [Concomitant]
     Active Substance: LISINOPRIL
     Route: 048
  18. NUVIGIL [Concomitant]
     Active Substance: ARMODAFINIL
     Route: 048
  19. ASPIRIN. [Concomitant]
     Active Substance: ASPIRIN
     Route: 048
  20. LISINOPRIL. [Concomitant]
     Active Substance: LISINOPRIL
     Route: 048
  21. VENTOLIN HFA [Concomitant]
     Active Substance: ALBUTEROL SULFATE
     Route: 065
  22. VITAMIN D3 [Concomitant]
     Active Substance: CHOLECALCIFEROL
     Dosage: 1000 UNITS
     Route: 048

REACTIONS (22)
  - Cardiovascular deconditioning [Unknown]
  - Obesity [Unknown]
  - Vitamin D deficiency [Unknown]
  - Sinusitis [Unknown]
  - Asthma [Unknown]
  - Dyspnoea [Unknown]
  - Dyspnoea exertional [Unknown]
  - Snoring [Unknown]
  - Drug dose omission [Unknown]
  - Arthralgia [Unknown]
  - Interstitial lung disease [Unknown]
  - Immunoglobulins increased [Unknown]
  - Bronchial hyperreactivity [Unknown]
  - Breath sounds abnormal [Unknown]
  - Sarcoidosis [Unknown]
  - Pulmonary hypertension [Unknown]
  - Acute sinusitis [Unknown]
  - Prolactinoma [Unknown]
  - Wheezing [Unknown]
  - Insomnia [Unknown]
  - Osteoarthritis [Unknown]
  - Narcolepsy [Unknown]

NARRATIVE: CASE EVENT DATE: 201006
